FAERS Safety Report 7883542 (Version 6)
Quarter: 2013Q3

REPORT INFORMATION
  Report Type: Spontaneous
  Country: FR (occurrence: FR)
  Receive Date: 20110404
  Receipt Date: 20130919
  Transmission Date: 20140515
  Serious: Yes (Hospitalization, Disabling)
  Sender: FDA-Public Use
  Company Number: FR-PFIZER INC-2011069231

PATIENT
  Age: 26 Year
  Sex: Female
  Weight: 74 kg

DRUGS (6)
  1. TRINORDIOL [Suspect]
     Indication: ORAL CONTRACEPTION
     Dosage: 80 MG, SINGLE
     Route: 048
     Dates: start: 200806, end: 200912
  2. HUMIRA [Suspect]
     Indication: PSORIASIS
     Dosage: 80 MG, UNK
     Route: 058
     Dates: start: 200908
  3. HUMIRA [Suspect]
     Dosage: 40 MG, UNK
     Route: 058
  4. HUMIRA [Suspect]
     Dosage: 40 MG, EVERY TWO WEEKS
     Route: 058
     Dates: end: 20091124
  5. DOLIPRANE [Concomitant]
     Indication: HEADACHE
     Dosage: ON DEMAND
  6. BI-PROFENID [Concomitant]
     Indication: HEADACHE
     Dosage: ON DEMAND

REACTIONS (3)
  - Spinal cord infarction [Recovered/Resolved with Sequelae]
  - Paresis [Not Recovered/Not Resolved]
  - Paraplegia [Not Recovered/Not Resolved]
